FAERS Safety Report 10174502 (Version 2)
Quarter: 2014Q2

REPORT INFORMATION
  Report Type: Spontaneous
  Country: US (occurrence: US)
  Receive Date: 20140515
  Receipt Date: 20140521
  Transmission Date: 20141212
  Serious: No
  Sender: FDA-Public Use
  Company Number: US-009507513-1405USA000451

PATIENT
  Age: 77 Year
  Sex: Female
  Weight: 61.22 kg

DRUGS (2)
  1. OXYTROL FOR WOMEN [Suspect]
     Indication: URINARY INCONTINENCE
     Dosage: UNK, UNKNOWN
     Route: 062
     Dates: start: 20140409
  2. INSULIN [Concomitant]
     Indication: DIABETES MELLITUS
     Dosage: UNK, QID

REACTIONS (2)
  - Off label use [Unknown]
  - Drug effect decreased [Unknown]
